FAERS Safety Report 7651222-8 (Version None)
Quarter: 2011Q3

REPORT INFORMATION
  Report Type: 
  Country: None (occurrence: None)
  Receive Date: 20110727
  Receipt Date: 20110721
  Transmission Date: 20111222
  Serious: Yes (Other)
  Sender: FDA-Public Use
  Company Number: CO-001880

PATIENT
  Age: 7 Year
  Sex: Male

DRUGS (1)
  1. NAGLAZYME [Suspect]
     Indication: PRODUCT USED FOR UNKNOWN INDICATION
     Dosage: 15 MG 1X/WEEK INTRAVENOUS DRIP
     Route: 041
     Dates: start: 20080711

REACTIONS (1)
  - SPINAL CORD COMPRESSION [None]
